FAERS Safety Report 23396108 (Version 5)
Quarter: 2024Q4

REPORT INFORMATION
  Report Type: Spontaneous
  Country: CN (occurrence: CN)
  Receive Date: 20240112
  Receipt Date: 20241016
  Transmission Date: 20250115
  Serious: Yes (Other)
  Sender: RANBAXY
  Company Number: CN-SUN PHARMACEUTICAL INDUSTRIES LTD-2023R1-388926

PATIENT
  Age: 34 Year
  Sex: Male

DRUGS (1)
  1. AZITHROMYCIN [Suspect]
     Active Substance: AZITHROMYCIN
     Indication: Pneumonia
     Dosage: UNK
     Route: 065

REACTIONS (2)
  - Fixed eruption [Recovered/Resolved]
  - Balanoposthitis [Recovered/Resolved]
